FAERS Safety Report 9109657 (Version 1)
Quarter: 2013Q1

REPORT INFORMATION
  Report Type: Other
  Country: KR (occurrence: KR)
  Receive Date: 20130222
  Receipt Date: 20130222
  Transmission Date: 20140127
  Serious: Yes (Other)
  Sender: FDA-Public Use
  Company Number: KR-BRISTOL-MYERS SQUIBB COMPANY-17387242

PATIENT
  Age: 55 Year
  Sex: Female

DRUGS (5)
  1. METFORMIN HCL [Suspect]
  2. AMLODIPINE [Concomitant]
  3. OLMESARTAN MEDOXOMIL [Concomitant]
  4. VITAMIN B COMPLEX + C [Concomitant]
  5. SITAGLIPTIN PHOSPHATE [Concomitant]

REACTIONS (1)
  - Toxic encephalopathy [Recovered/Resolved]
